FAERS Safety Report 11886938 (Version 1)
Quarter: 2016Q1

REPORT INFORMATION
  Report Type: Spontaneous
  Country: US (occurrence: US)
  Receive Date: 20160104
  Receipt Date: 20160104
  Transmission Date: 20160526
  Serious: Yes (Hospitalization, Other)
  Sender: FDA-Public Use
  Company Number: US-MEDTRONIC-1046104

PATIENT
  Age: 48 Year
  Sex: Female

DRUGS (2)
  1. BACLOFEN UNKNOWN 800 MCG/ML [Suspect]
     Active Substance: BACLOFEN
     Indication: MUSCLE SPASTICITY
     Route: 037
  2. BUPIVACAINE HCL [Suspect]
     Active Substance: BUPIVACAINE HYDROCHLORIDE
     Route: 037

REACTIONS (7)
  - Pneumonia aspiration [None]
  - Wound dehiscence [Recovered/Resolved]
  - Urinary tract infection [None]
  - Impaired healing [Recovered/Resolved]
  - Nephrolithiasis [None]
  - Sepsis [None]
  - Thrombosis [Recovered/Resolved]

NARRATIVE: CASE EVENT DATE: 201511
